FAERS Safety Report 24277662 (Version 1)
Quarter: 2024Q3

REPORT INFORMATION
  Report Type: Spontaneous
  Country: US (occurrence: US)
  Receive Date: 20240903
  Receipt Date: 20240903
  Transmission Date: 20241016
  Serious: No
  Sender: RECKITT BENCKISER
  Company Number: US-PROD-AS2-212756134-RB-103890-2023

PATIENT

DRUGS (3)
  1. MUCINEX [Suspect]
     Active Substance: GUAIFENESIN
     Indication: Productive cough
     Dosage: UNKNOWN
     Route: 048
  2. MUCINEX [Suspect]
     Active Substance: GUAIFENESIN
     Indication: Upper-airway cough syndrome
  3. MUCINEX [Suspect]
     Active Substance: GUAIFENESIN
     Indication: Sinus disorder

REACTIONS (1)
  - Drug effective for unapproved indication [Unknown]
